FAERS Safety Report 20795936 (Version 3)
Quarter: 2022Q3

REPORT INFORMATION
  Report Type: Spontaneous
  Country: JP (occurrence: JP)
  Receive Date: 20220506
  Receipt Date: 20220705
  Transmission Date: 20221026
  Serious: No
  Sender: FDA-Public Use
  Company Number: JP-GLAXOSMITHKLINE-JP2022JPN072029

PATIENT

DRUGS (5)
  1. SOTROVIMAB [Suspect]
     Active Substance: SOTROVIMAB
     Indication: Coronavirus test positive
     Dosage: 500 MG
     Route: 042
     Dates: start: 20220227, end: 20220227
  2. AMBROXOL [Suspect]
     Active Substance: AMBROXOL
     Dosage: 45 MG/DAY
     Route: 048
     Dates: start: 20220225
  3. TRANDATE [Suspect]
     Active Substance: LABETALOL HYDROCHLORIDE
     Dosage: 150 MG/DAY
     Route: 048
     Dates: start: 20220225
  4. SODIUM FERROUS CITRATE [Suspect]
     Active Substance: SODIUM FERROUS CITRATE
     Dosage: 100 MG/DAY
     Route: 048
     Dates: start: 20220222
  5. ADALAT CC [Suspect]
     Active Substance: NIFEDIPINE
     Dosage: 10 MG/DAY
     Route: 048
     Dates: start: 20220226

REACTIONS (1)
  - Exposure during pregnancy [Unknown]
